FAERS Safety Report 18262971 (Version 1)
Quarter: 2020Q3

REPORT INFORMATION
  Report Type: Spontaneous
  Country: US (occurrence: US)
  Receive Date: 20200914
  Receipt Date: 20200914
  Transmission Date: 20201103
  Serious: No
  Sender: FDA-Public Use
  Company Number: None

PATIENT
  Age: 60 Year
  Sex: Female
  Weight: 92.7 kg

DRUGS (10)
  1. NATURE?THROID [Concomitant]
     Active Substance: THYROID, PORCINE
  2. MULTI?VITAMIN [Concomitant]
     Active Substance: .ALPHA.-TOCOPHEROL ACETATE, DL-\ASCORBIC ACID\CYANOCOBALAMIN\FLUORIDE ION\FOLIC ACID\NIACIN\PYRIDOXINE\RIBOFLAVIN\THIAMINE\VITAMIN A\VITAMIN D
  3. TRAMADOL. [Concomitant]
     Active Substance: TRAMADOL
  4. GABAPENTIN. [Concomitant]
     Active Substance: GABAPENTIN
  5. PROBIOTIC [Concomitant]
     Active Substance: PROBIOTICS NOS
  6. MYRBETRIQ [Concomitant]
     Active Substance: MIRABEGRON
  7. VITAMIN D3 [Concomitant]
     Active Substance: CHOLECALCIFEROL
  8. NATURE?THROID [Suspect]
     Active Substance: THYROID, PORCINE
     Indication: THYROID DISORDER
     Dosage: ?          QUANTITY:1 TABLET(S);?
     Route: 048
     Dates: start: 20180101, end: 20200914
  9. ASPIRIN. [Concomitant]
     Active Substance: ASPIRIN
  10. TEMAZEPAM. [Concomitant]
     Active Substance: TEMAZEPAM

REACTIONS (6)
  - Loss of personal independence in daily activities [None]
  - Hyperhidrosis [None]
  - Abdominal pain upper [None]
  - Migraine [None]
  - Nausea [None]
  - Weight increased [None]

NARRATIVE: CASE EVENT DATE: 20200601
